FAERS Safety Report 21505299 (Version 3)
Quarter: 2022Q4

REPORT INFORMATION
  Report Type: Report from Study
  Country: US (occurrence: US)
  Receive Date: 20221026
  Receipt Date: 20221108
  Transmission Date: 20230113
  Serious: Yes (Death, Other)
  Sender: FDA-Public Use
  Company Number: US-ABBVIE-4175938

PATIENT
  Age: 81 Year
  Sex: Male

DRUGS (1)
  1. VENCLEXTA [Suspect]
     Active Substance: VENETOCLAX
     Indication: Acute leukaemia
     Dosage: FORM STRENGTH100 MG
     Route: 048

REACTIONS (5)
  - Death [Fatal]
  - Laboratory test abnormal [Unknown]
  - Unevaluable event [Unknown]
  - Drug ineffective [Unknown]
  - Leukaemia [Unknown]

NARRATIVE: CASE EVENT DATE: 20221001
